FAERS Safety Report 6244926-5 (Version None)
Quarter: 2009Q2

REPORT INFORMATION
  Report Type: 
  Country: None (occurrence: None)
  Receive Date: 20090625
  Receipt Date: 20090615
  Transmission Date: 20091009
  Serious: Yes (Other)
  Sender: FDA-Public Use
  Company Number: PHEH2007US04437

PATIENT
  Sex: Female

DRUGS (9)
  1. ZOMETA [Suspect]
     Indication: BREAST CANCER
     Route: 042
  2. EFFEXOR [Concomitant]
  3. ATIVAN [Concomitant]
  4. TAMOXIFEN CITRATE [Concomitant]
  5. VOLTAREN [Concomitant]
  6. ULTRAM [Concomitant]
  7. CHEMOTHERAPEUTICS NOS [Concomitant]
  8. RADIATION THERAPY [Concomitant]
  9. VICODIN [Concomitant]

REACTIONS (42)
  - ACCIDENT [None]
  - ANAEMIA [None]
  - ANXIETY [None]
  - BLADDER PROLAPSE [None]
  - BONE DISORDER [None]
  - BONE EROSION [None]
  - CARDIAC MURMUR [None]
  - CHEST PAIN [None]
  - CYSTOCELE [None]
  - DECREASED INTEREST [None]
  - DEFORMITY [None]
  - DIARRHOEA [None]
  - DRUG WITHDRAWAL SYNDROME [None]
  - EATING DISORDER [None]
  - EMOTIONAL DISTRESS [None]
  - EXCORIATION [None]
  - FACIAL NERVE DISORDER [None]
  - FACIAL PARESIS [None]
  - FALL [None]
  - GENERAL PHYSICAL HEALTH DETERIORATION [None]
  - HEADACHE [None]
  - HYPOAESTHESIA [None]
  - HYPOPHAGIA [None]
  - INFECTION [None]
  - INSOMNIA [None]
  - LACERATION [None]
  - MASTICATION DISORDER [None]
  - MIGRAINE [None]
  - MOUTH ULCERATION [None]
  - MYALGIA [None]
  - NAUSEA [None]
  - OEDEMA PERIPHERAL [None]
  - OSTEONECROSIS [None]
  - PAIN [None]
  - POLLAKIURIA [None]
  - RECTOCELE [None]
  - SELF INJURIOUS BEHAVIOUR [None]
  - SLEEP DISORDER [None]
  - TOOTH ABSCESS [None]
  - TOOTH DISORDER [None]
  - VOMITING [None]
  - WEIGHT DECREASED [None]
